FAERS Safety Report 14780687 (Version 1)
Quarter: 2018Q2

REPORT INFORMATION
  Report Type: Spontaneous
  Country: SE (occurrence: SE)
  Receive Date: 20180419
  Receipt Date: 20180419
  Transmission Date: 20180711
  Serious: Yes (Other)
  Sender: FDA-Public Use
  Company Number: SE-PFIZER INC-2018155523

PATIENT
  Age: 30 Year
  Sex: Female
  Weight: 117 kg

DRUGS (1)
  1. PROVERA [Suspect]
     Active Substance: MEDROXYPROGESTERONE ACETATE
     Indication: POLYCYSTIC OVARIES
     Dosage: 10MG FOR 10 DAYS EVERY 3 MONTHS
     Dates: start: 20160401, end: 20170322

REACTIONS (5)
  - Agitation [Recovered/Resolved]
  - Depression [Recovered/Resolved]
  - Irritability [Recovered/Resolved]
  - Product use in unapproved indication [Unknown]
  - Listless [Recovered/Resolved]

NARRATIVE: CASE EVENT DATE: 20160401
